FAERS Safety Report 4533559-4 (Version None)
Quarter: 2005Q1

REPORT INFORMATION
  Report Type: 
  Country: None (occurrence: None)
  Receive Date: 20041206
  Receipt Date: 20041011
  Transmission Date: 20050727
  Serious: No
  Sender: FDA-Public Use
  Company Number: USA041079960

PATIENT
  Age: 79 Year
  Sex: Male

DRUGS (1)
  1. CYMBALTA [Suspect]
     Dosage: 60 MG DAY

REACTIONS (1)
  - DIZZINESS [None]
